FAERS Safety Report 7648463-2 (Version None)
Quarter: 2011Q3

REPORT INFORMATION
  Report Type: 
  Country: None (occurrence: None)
  Receive Date: 20110801
  Receipt Date: 20110728
  Transmission Date: 20111222
  Serious: Yes (Death)
  Sender: FDA-Public Use
  Company Number: US-ASTRAZENECA-2011SE43992

PATIENT
  Age: 88 Year
  Sex: Female

DRUGS (7)
  1. FERROUS SULFATE TAB [Concomitant]
  2. VERAPAMIL [Concomitant]
     Indication: HYPERTENSION
  3. NEXIUM [Suspect]
     Route: 048
  4. VITAMIN TAB [Concomitant]
  5. LISINOPRIL [Concomitant]
     Indication: HYPERTENSION
  6. EYE DROPS [Concomitant]
     Indication: GLAUCOMA
  7. SIMVASTATIN [Concomitant]
     Indication: BLOOD CHOLESTEROL ABNORMAL

REACTIONS (3)
  - RENAL FAILURE [None]
  - RHABDOMYOLYSIS [None]
  - AORTIC STENOSIS [None]
